FAERS Safety Report 25823924 (Version 1)
Quarter: 2025Q3

REPORT INFORMATION
  Report Type: Spontaneous
  Country: US (occurrence: None)
  Receive Date: 20250918
  Receipt Date: 20250918
  Transmission Date: 20251020
  Serious: Yes (Disabling, Other)
  Sender: FDA-CTU
  Company Number: None

PATIENT
  Age: 58 Year
  Sex: Female
  Weight: 49.5 kg

DRUGS (11)
  1. NIGHTTIME SLEEP AID (DIPHENHYDRAMINE HYDROCHLORIDE) [Suspect]
     Active Substance: DIPHENHYDRAMINE HYDROCHLORIDE
     Indication: Sleep disorder
     Dosage: OTHER QUANTITY : 1 TABLET(S);?FREQUENCY : AT BEDTIME;?
     Route: 048
     Dates: start: 20040401, end: 20241201
  2. Quilipta (60 mg daily) for migraines [Concomitant]
  3. Sertraline (50 mg daily) for anxiety [Concomitant]
  4. Magnesium Glycentate [Concomitant]
  5. LITHIUM [Concomitant]
     Active Substance: LITHIUM
  6. FISH OIL [Concomitant]
     Active Substance: FISH OIL
  7. B12 [Concomitant]
  8. DIETARY SUPPLEMENT [Concomitant]
     Active Substance: DIETARY SUPPLEMENT
  9. CDP Choline [Concomitant]
  10. PANTOTHENIC ACID [Concomitant]
     Active Substance: PANTOTHENIC ACID
  11. GLYCINE [Concomitant]
     Active Substance: GLYCINE

REACTIONS (18)
  - Therapy cessation [None]
  - Withdrawal syndrome [None]
  - Insomnia [None]
  - Anxiety [None]
  - Migraine [None]
  - Dizziness [None]
  - Ear pain [None]
  - Paraesthesia [None]
  - Tinnitus [None]
  - Electric shock sensation [None]
  - Hyperacusis [None]
  - Paraesthesia [None]
  - Burning sensation [None]
  - Pain [None]
  - Joint stiffness [None]
  - Impaired work ability [None]
  - Vertigo [None]
  - Balance disorder [None]

NARRATIVE: CASE EVENT DATE: 20241201
